FAERS Safety Report 6124137-4 (Version None)
Quarter: 2009Q1

REPORT INFORMATION
  Report Type: 
  Country: None (occurrence: None)
  Receive Date: 20090316
  Receipt Date: 20090113
  Transmission Date: 20090719
  Serious: No
  Sender: FDA-Public Use
  Company Number: DSA_33087_2009

PATIENT
  Sex: Male

DRUGS (7)
  1. XENAZINE [Suspect]
     Indication: DRUG USE FOR UNKNOWN INDICATION
     Dosage: (12.5 TID QD), (12.5 MG BID)
     Dates: start: 20090106, end: 20090101
  2. XENAZINE [Suspect]
     Indication: DRUG USE FOR UNKNOWN INDICATION
     Dosage: (12.5 TID QD), (12.5 MG BID)
     Dates: start: 20090101
  3. ZYPREXA [Concomitant]
  4. LAMICTAL [Concomitant]
  5. HUMATROPE [Concomitant]
  6. MELATONIN [Concomitant]
  7. VIVARIN [Concomitant]

REACTIONS (2)
  - CONDITION AGGRAVATED [None]
  - IRRITABILITY [None]
